FAERS Safety Report 15786880 (Version 1)
Quarter: 2019Q1

REPORT INFORMATION
  Report Type: Report from Study
  Country: US (occurrence: US)
  Receive Date: 20190103
  Receipt Date: 20190103
  Transmission Date: 20190417
  Serious: Yes (Other)
  Sender: FDA-Public Use
  Company Number: US-TEVA-2018-US-993499

PATIENT
  Age: 24 Year
  Sex: Male

DRUGS (4)
  1. CICLOSPORIN [Suspect]
     Active Substance: CYCLOSPORINE
     Indication: UVEITIS
  2. PREDNISONE. [Suspect]
     Active Substance: PREDNISONE
     Indication: UVEITIS
     Dosage: IMMUNO-MODULATORY THERAPY
     Route: 048
  3. PREDNISONE. [Suspect]
     Active Substance: PREDNISONE
     Indication: UVEITIS
  4. CICLOSPORIN [Suspect]
     Active Substance: CYCLOSPORINE
     Indication: UVEITIS
     Dosage: IMMUNO-MODULATORY THERAPY
     Route: 065

REACTIONS (1)
  - Histoplasmosis [Unknown]
